FAERS Safety Report 13576965 (Version 1)
Quarter: 2017Q2

REPORT INFORMATION
  Report Type: Spontaneous
  Country: CL (occurrence: CL)
  Receive Date: 20170524
  Receipt Date: 20170524
  Transmission Date: 20170830
  Serious: Yes (Life-Threatening, Hospitalization, Other)
  Sender: FDA-Public Use
  Company Number: CL-AMGEN-CHLSP2017078838

PATIENT
  Age: 16 Year
  Sex: Female

DRUGS (2)
  1. ENBREL [Suspect]
     Active Substance: ETANERCEPT
     Indication: PRODUCT USED FOR UNKNOWN INDICATION
     Dosage: 50 MG, WEEKLY
     Route: 065
  2. AZULFIDINE EN-TABS [Concomitant]
     Active Substance: SULFASALAZINE
     Dosage: UNK

REACTIONS (2)
  - Coma [Recovering/Resolving]
  - Encephalitis autoimmune [Recovering/Resolving]

NARRATIVE: CASE EVENT DATE: 20160630
